FAERS Safety Report 13054369 (Version 2)
Quarter: 2016Q4

REPORT INFORMATION
  Report Type: Spontaneous
  Country: ES (occurrence: ES)
  Receive Date: 20161222
  Receipt Date: 20161229
  Transmission Date: 20170207
  Serious: Yes (Other)
  Sender: FDA-Public Use
  Company Number: ES-PFIZER INC-2016591414

PATIENT
  Age: 59 Year
  Sex: Male
  Weight: 103 kg

DRUGS (2)
  1. CAPENON [Suspect]
     Active Substance: AMLODIPINE BESYLATE\OLMESARTAN MEDOXOMIL
     Indication: HYPERTENSION
     Dosage: 1 DF, DAILY
     Route: 048
     Dates: start: 20140926, end: 20161202
  2. ATORVASTATINA PFIZER [Suspect]
     Active Substance: ATORVASTATIN
     Indication: HYPERLIPIDAEMIA
     Dosage: 20 MG, 1X/DAY
     Route: 048
     Dates: start: 20160424, end: 20161202

REACTIONS (5)
  - Hepatitis [Not Recovered/Not Resolved]
  - Type 2 diabetes mellitus [Unknown]
  - Cholestasis [Unknown]
  - Hepatic steatosis [Not Recovered/Not Resolved]
  - Hyperbilirubinaemia [Not Recovered/Not Resolved]

NARRATIVE: CASE EVENT DATE: 2016
